FAERS Safety Report 5358450-5 (Version None)
Quarter: 2007Q2

REPORT INFORMATION
  Report Type: 
  Country: None (occurrence: None)
  Receive Date: 20070601
  Receipt Date: 20070221
  Transmission Date: 20071010
  Serious: No
  Sender: FDA-Public Use
  Company Number: PHEH2007US02332

PATIENT
  Sex: Female

DRUGS (6)
  1. ENABLEX [Suspect]
     Indication: HYPERTONIC BLADDER
     Dosage: 15 MG, QHS, ORAL
     Route: 048
     Dates: start: 20060501, end: 20060501
  2. CLONIDINE [Concomitant]
  3. NORVASC [Concomitant]
  4. MECLIZINE [Concomitant]
  5. CYMBALTA [Concomitant]
  6. LISINOPRIL [Concomitant]

REACTIONS (2)
  - DRUG INEFFECTIVE [None]
  - MEDICAL DEVICE IMPLANTATION [None]
